FAERS Safety Report 4517543-2 (Version None)
Quarter: 2004Q4

REPORT INFORMATION
  Report Type: 
  Country: None (occurrence: None)
  Receive Date: 20041203
  Receipt Date: 20041123
  Transmission Date: 20050328
  Serious: Yes (Other)
  Sender: FDA-Public Use
  Company Number: NL-ABBOTT-04P-114-0281537-00

PATIENT
  Sex: Female

DRUGS (11)
  1. HUMIRA [Suspect]
     Indication: RHEUMATOID ARTHRITIS
     Dosage: 40 MG
     Route: 058
     Dates: start: 20040421
  2. LEFLUNOMIDE [Concomitant]
     Indication: RHEUMATOID ARTHRITIS
     Route: 048
     Dates: start: 20020321, end: 20030805
  3. LEFLUNOMIDE [Concomitant]
     Route: 048
     Dates: start: 20030805, end: 20030930
  4. LEFLUNOMIDE [Concomitant]
     Route: 048
     Dates: start: 20030930, end: 20031024
  5. NAPROXEN [Concomitant]
     Indication: RHEUMATOID ARTHRITIS
     Route: 048
  6. METHOTREXATE [Concomitant]
     Indication: RHEUMATOID ARTHRITIS
     Dosage: 12.5 MG
     Route: 048
     Dates: start: 20010101, end: 20020321
  7. SULFASALAZINE [Concomitant]
     Indication: RHEUMATOID ARTHRITIS
     Route: 048
     Dates: start: 20000101, end: 20010101
  8. SULFASALAZINE [Concomitant]
     Route: 048
     Dates: start: 19990101, end: 20000101
  9. HYDROXYCHLOROQUINE PHOSPHATE [Concomitant]
     Indication: RHEUMATOID ARTHRITIS
     Route: 048
     Dates: start: 20000101, end: 20010101
  10. DIANE [Concomitant]
     Indication: ORAL CONTRACEPTION
     Route: 048
     Dates: start: 19820101
  11. ANTIBIOTIC [Concomitant]
     Indication: CYSTITIS
     Route: 048
     Dates: start: 20031001, end: 20031101

REACTIONS (7)
  - EPSTEIN-BARR VIRUS INFECTION [None]
  - EYELID OEDEMA [None]
  - LYMPHADENOPATHY [None]
  - OEDEMA MOUTH [None]
  - PHARYNGEAL OEDEMA [None]
  - PHARYNGITIS [None]
  - PYREXIA [None]
